FAERS Safety Report 15793360 (Version 1)
Quarter: 2019Q1

REPORT INFORMATION
  Report Type: Spontaneous
  Country: US (occurrence: US)
  Receive Date: 20190107
  Receipt Date: 20190107
  Transmission Date: 20190417
  Serious: No
  Sender: FDA-Public Use
  Company Number: US-ACLARIS THERAPEUTICS-2018US011391

PATIENT
  Age: 47 Year
  Sex: Female

DRUGS (1)
  1. ESKATA [Suspect]
     Active Substance: HYDROGEN PEROXIDE
     Indication: SEBORRHOEIC KERATOSIS
     Dosage: 1 DF, UNK
     Route: 061
     Dates: start: 20181030

REACTIONS (4)
  - Application site erythema [Not Recovered/Not Resolved]
  - Application site scab [Unknown]
  - Application site pain [Not Recovered/Not Resolved]
  - Application site ulcer [Not Recovered/Not Resolved]

NARRATIVE: CASE EVENT DATE: 20181031
